FAERS Safety Report 12146066 (Version 1)
Quarter: 2016Q1

REPORT INFORMATION
  Report Type: Spontaneous
  Country: US (occurrence: None)
  Receive Date: 20160303
  Receipt Date: 20160303
  Transmission Date: 20160526
  Serious: No
  Sender: FDA-Public Use
  Company Number: None

PATIENT
  Age: 20 Year
  Sex: Male

DRUGS (9)
  1. VITAMIN D [Concomitant]
     Active Substance: CHOLECALCIFEROL
  2. CYCLOBENZAPRINE [Concomitant]
     Active Substance: CYCLOBENZAPRINE
  3. ENBREL [Suspect]
     Active Substance: ETANERCEPT
     Indication: SACROILIITIS
     Dosage: 50MG (1ML) ONCE WEEKLY INJECTION (SQ)
     Route: 058
     Dates: start: 20150613
  4. VITAMIN C [Concomitant]
     Active Substance: ASCORBIC ACID
  5. FISH OIL [Concomitant]
     Active Substance: FISH OIL
  6. GINGER. [Concomitant]
     Active Substance: GINGER
  7. INDOMETHACIN. [Concomitant]
     Active Substance: INDOMETHACIN
  8. NOVOLOG [Concomitant]
     Active Substance: INSULIN ASPART
  9. RANITIDINE [Concomitant]
     Active Substance: RANITIDINE\RANITIDINE HYDROCHLORIDE

REACTIONS (2)
  - Oropharyngeal pain [None]
  - Pharyngeal oedema [None]

NARRATIVE: CASE EVENT DATE: 20160302
